FAERS Safety Report 7454835-1 (Version None)
Quarter: 2011Q2

REPORT INFORMATION
  Report Type: 
  Country: None (occurrence: None)
  Receive Date: 20110503
  Receipt Date: 20100622
  Transmission Date: 20111010
  Serious: No
  Sender: FDA-Public Use
  Company Number: US-PFIZER INC-2010078561

PATIENT
  Sex: Female
  Weight: 58.957 kg

DRUGS (1)
  1. DEPO-PROVERA [Suspect]
     Indication: CONTRACEPTION
     Dosage: UNK
     Route: 030
     Dates: start: 20080101, end: 20100101

REACTIONS (5)
  - LIP SWELLING [None]
  - LIP DISCOLOURATION [None]
  - HYPOAESTHESIA ORAL [None]
  - LIP EXFOLIATION [None]
  - LIP DRY [None]
